FAERS Safety Report 9685519 (Version 3)
Quarter: 2013Q4

REPORT INFORMATION
  Report Type: Spontaneous
  Country: US (occurrence: US)
  Receive Date: 20131113
  Receipt Date: 20131206
  Transmission Date: 20140711
  Serious: Yes (Hospitalization)
  Sender: FDA-Public Use
  Company Number: US-BRISTOL-MYERS SQUIBB COMPANY-19594787

PATIENT
  Age: 80 Year
  Sex: Male

DRUGS (7)
  1. SPRYCEL (CML) TABS 100 MG [Suspect]
     Indication: CHRONIC MYELOID LEUKAEMIA
     Dosage: 30AUG13-29APR13:100MG?20MAY13-ONG:100MG
     Route: 048
     Dates: start: 20120830, end: 20130429
  2. OMEGA-3 [Concomitant]
  3. GINGER ROOT [Concomitant]
  4. CALCIUM + VITAMIN D [Concomitant]
  5. LUTEIN [Concomitant]
  6. TRIMEDAL [Concomitant]
  7. MULTIVITAMINS [Concomitant]

REACTIONS (1)
  - Myelodysplastic syndrome [Unknown]
